FAERS Safety Report 4882379-X (Version None)
Quarter: 2005Q4

REPORT INFORMATION
  Report Type: 
  Country: None (occurrence: None)
  Receive Date: 20051201
  Receipt Date: 20050726
  Transmission Date: 20060501
  Serious: No
  Sender: FDA-Public Use
  Company Number: 2005PV000609

PATIENT
  Age: 67 Year
  Sex: Male
  Weight: 88.4514 kg

DRUGS (7)
  1. BYETTA [Suspect]
     Indication: DIABETES MELLITUS NON-INSULIN-DEPENDENT
     Dosage: 5 MCG;BID;SC
     Route: 058
     Dates: start: 20050725
  2. GLIPIZIDE [Concomitant]
  3. AVANDAMET [Concomitant]
  4. NORVASTATIN [Concomitant]
  5. DIOVAN [Concomitant]
  6. FUROSEMIDE [Concomitant]
  7. CIPROFLOXACIN [Concomitant]

REACTIONS (3)
  - BLOOD URINE [None]
  - NAUSEA [None]
  - VOMITING [None]
